FAERS Safety Report 23593451 (Version 1)
Quarter: 2024Q1

REPORT INFORMATION
  Report Type: Spontaneous
  Country: CN (occurrence: CN)
  Receive Date: 20240304
  Receipt Date: 20240304
  Transmission Date: 20240410
  Serious: Yes (Other)
  Sender: FDA-Public Use
  Company Number: CN-TAKEDA-2024TUS018151

PATIENT
  Age: 20 Year
  Sex: Male
  Weight: 110 kg

DRUGS (1)
  1. ADCETRIS [Suspect]
     Active Substance: BRENTUXIMAB VEDOTIN
     Indication: Leukaemia
     Dosage: 180 MILLIGRAM, QD
     Route: 041
     Dates: start: 20240214, end: 20240214

REACTIONS (6)
  - Flushing [Recovering/Resolving]
  - Throat irritation [Recovering/Resolving]
  - Dry throat [Recovering/Resolving]
  - Pruritus [Recovering/Resolving]
  - Rash [Recovering/Resolving]
  - Hypoaesthesia [Recovering/Resolving]

NARRATIVE: CASE EVENT DATE: 20240214
